FAERS Safety Report 11202656 (Version 1)
Quarter: 2015Q2

REPORT INFORMATION
  Report Type: Spontaneous
  Country: US (occurrence: None)
  Receive Date: 20150617
  Receipt Date: 20150617
  Transmission Date: 20150821
  Serious: Yes (Life-Threatening, Hospitalization)
  Sender: FDA-Public Use
  Company Number: None

PATIENT
  Age: 75 Year
  Sex: Male
  Weight: 141.4 kg

DRUGS (1)
  1. AZITHROMYCIN [Suspect]
     Active Substance: AZITHROMYCIN ANHYDROUS
     Indication: HELICOBACTER INFECTION
     Route: 048
     Dates: start: 20121129, end: 20121202

REACTIONS (3)
  - Torsade de pointes [None]
  - Electrocardiogram QT prolonged [None]
  - Sudden cardiac death [None]

NARRATIVE: CASE EVENT DATE: 20121201
